FAERS Safety Report 9293567 (Version 2)
Quarter: 2013Q2

REPORT INFORMATION
  Report Type: Spontaneous
  Country: IT (occurrence: IT)
  Receive Date: 20130516
  Receipt Date: 20130613
  Transmission Date: 20140414
  Serious: Yes (Hospitalization)
  Sender: FDA-Public Use
  Company Number: PHHY2013IT048095

PATIENT
  Age: 39 Year
  Sex: Female

DRUGS (13)
  1. CLOZAPINE [Suspect]
     Dosage: 200 MG, UNK
  2. CLOZAPINE [Suspect]
     Dosage: 37.5 MG, UNK
  3. CLOZAPINE [Suspect]
     Dosage: 400 MG, UNK
  4. CLOZAPINE [Suspect]
     Dosage: 150 MG, UNK
  5. PIPAMPERONE [Suspect]
     Dosage: 80 MG, UNK
  6. VALPROIC ACID [Suspect]
     Dosage: 700 MG, UNK
  7. LEVODOPA+CARBIDOPA [Suspect]
     Dosage: 1 DF, TID
  8. HALOPERIDOL [Suspect]
     Dosage: 7 MG, UNK
     Route: 030
  9. DIAZEPAM [Suspect]
     Dosage: 10 MG, UNK
  10. DIAZEPAM [Suspect]
     Dosage: 20 TO 30 MG DAILY
     Route: 041
  11. APOMORPHINE [Suspect]
     Dosage: 15 MG, UNK
     Route: 058
  12. LITHIUM [Suspect]
     Dosage: 600 MG, UNK
  13. LITHIUM [Suspect]
     Dosage: 450 MG, UNK

REACTIONS (30)
  - Neuroleptic malignant syndrome [Unknown]
  - Catatonia [Unknown]
  - Bipolar disorder [Unknown]
  - Hyperthermia [Unknown]
  - Leukocytosis [Unknown]
  - Tremor [Unknown]
  - Immobile [Unknown]
  - Mutism [Unknown]
  - Abnormal behaviour [Unknown]
  - Negativism [Unknown]
  - Muscle rigidity [Unknown]
  - Gastrointestinal hypomotility [Unknown]
  - Hyperhidrosis [Unknown]
  - Electrolyte imbalance [Unknown]
  - Musculoskeletal stiffness [Unknown]
  - Waxy flexibility [Unknown]
  - General physical health deterioration [Unknown]
  - Affect lability [Unknown]
  - Middle insomnia [Unknown]
  - Suspiciousness [Unknown]
  - Psychomotor hyperactivity [Unknown]
  - Impulsive behaviour [Unknown]
  - Aggression [Unknown]
  - Delusion [Unknown]
  - Abdominal distension [Unknown]
  - Altered state of consciousness [Unknown]
  - Anxiety [Unknown]
  - Clonus [Unknown]
  - Pyrexia [Unknown]
  - Agitation [Unknown]
